FAERS Safety Report 6647213-6 (Version None)
Quarter: 2010Q1

REPORT INFORMATION
  Report Type: 
  Country: None (occurrence: None)
  Receive Date: 20100323
  Receipt Date: 20100316
  Transmission Date: 20100710
  Serious: Yes (Hospitalization)
  Sender: FDA-Public Use
  Company Number: A0810009A

PATIENT
  Age: 59 Year
  Sex: Male
  Weight: 174.5 kg

DRUGS (2)
  1. AVANDIA [Suspect]
     Route: 048
     Dates: start: 19990901, end: 20070703
  2. AVANDAMET [Suspect]
     Dosage: 1TAB TWICE PER DAY
     Route: 048
     Dates: start: 20060106

REACTIONS (5)
  - ACUTE MYOCARDIAL INFARCTION [None]
  - CARDIAC FAILURE CONGESTIVE [None]
  - CORONARY ARTERY DISEASE [None]
  - RENAL FAILURE ACUTE [None]
  - THROMBOSIS [None]
